FAERS Safety Report 8791220 (Version 1)
Quarter: 2012Q4

REPORT INFORMATION
  Report Type: Spontaneous
  Country: US (occurrence: None)
  Receive Date: 20120911
  Receipt Date: 20120911
  Transmission Date: 20130627
  Serious: Yes (Hospitalization, Disabling)
  Sender: FDA-Public Use
  Company Number: E2B_7158322

PATIENT
  Age: 13 Year
  Sex: Female

DRUGS (8)
  1. EUTIROX [Suspect]
     Dosage: (0.05 mg, 1 in 1D) increase of the daily dose
     Route: 048
     Dates: start: 2006
  2. CALCIUM CARBONATE [Suspect]
     Dosage: (500 mg, 3 in 1 D)
     Route: 048
     Dates: start: 20101130
  3. RESICAL (CALCIUM POLYSTYRENE SULFONATE) POWDER FOR ORAL SUSPENSION) [Suspect]
     Dosage: (15 gm, 2 in 1 D)
     Route: 048
     Dates: start: 20101130
  4. BICARBONATO DE SODIO LABESFAL (SODIUM BICARBONATE) (CAPSULE, HARD) [Suspect]
     Dosage: (4 gm, 1 in 1 D)
     Route: 048
     Dates: start: 20101130
  5. CATALIP [Suspect]
     Route: 048
     Dates: start: 201109, end: 201201
  6. CATALIP [Suspect]
     Route: 048
     Dates: start: 201201, end: 20120604
  7. FERRUM [Suspect]
     Dosage: (100 mg, 2 in 1 D)
     Route: 048
     Dates: start: 20101130
  8. ROCALTROL (CALCITRIOL) (CAPSULE, SOFT) [Concomitant]

REACTIONS (4)
  - Hepatitis [None]
  - Rhabdomyolysis [None]
  - Hypothyroidism [None]
  - Renal impairment [None]
